FAERS Safety Report 21812960 (Version 1)
Quarter: 2023Q1

REPORT INFORMATION
  Report Type: Spontaneous
  Country: US (occurrence: None)
  Receive Date: 20230102
  Receipt Date: 20230102
  Transmission Date: 20230417
  Serious: Yes (Other)
  Sender: FDA-Public Use
  Company Number: None

PATIENT
  Age: 6 Year
  Sex: Male
  Weight: 22.7 kg

DRUGS (1)
  1. PEGASPARGASE [Suspect]
     Active Substance: PEGASPARGASE
     Indication: Lymphoma
     Route: 041
     Dates: start: 20221228, end: 20221228

REACTIONS (7)
  - Infusion related reaction [None]
  - Hypoxia [None]
  - Erythema [None]
  - Urticaria [None]
  - Angioedema [None]
  - Rhonchi [None]
  - Wheezing [None]

NARRATIVE: CASE EVENT DATE: 20221230
